FAERS Safety Report 13498026 (Version 1)
Quarter: 2017Q2

REPORT INFORMATION
  Report Type: Spontaneous
  Country: US (occurrence: US)
  Receive Date: 20170428
  Receipt Date: 20170428
  Transmission Date: 20170830
  Serious: Yes (Other)
  Sender: FDA-Public Use
  Company Number: US-BRISTOL-MYERS SQUIBB COMPANY-BMS-2017-035019

PATIENT
  Sex: Male

DRUGS (1)
  1. SPRYCEL [Suspect]
     Active Substance: DASATINIB
     Indication: CHRONIC MYELOID LEUKAEMIA
     Dosage: 100 MG
     Route: 065
     Dates: start: 20170211

REACTIONS (6)
  - Insomnia [Unknown]
  - Nail ridging [Unknown]
  - Onychoclasis [Unknown]
  - Vision blurred [Unknown]
  - Fatigue [Unknown]
  - Retinal scar [Unknown]
